FAERS Safety Report 22251821 (Version 1)
Quarter: 2023Q2

REPORT INFORMATION
  Report Type: Spontaneous
  Country: CN (occurrence: CN)
  Receive Date: 20230425
  Receipt Date: 20230425
  Transmission Date: 20230721
  Serious: Yes (Other)
  Sender: FDA-Public Use
  Company Number: CN-009507513-2304CHN008931

PATIENT
  Age: 61 Year
  Sex: Male

DRUGS (4)
  1. KEYTRUDA [Suspect]
     Active Substance: PEMBROLIZUMAB
     Indication: Drug therapy
     Dosage: 200 MG, ONCE, IV DRIP
     Route: 041
     Dates: start: 20230405, end: 20230405
  2. GIMERACIL\OTERACIL\TEGAFUR [Suspect]
     Active Substance: GIMERACIL\OTERACIL\OTERACIL POTASSIUM\TEGAFUR
     Indication: Drug therapy
     Dosage: 60 MG, BID, ORAL
     Route: 048
     Dates: start: 20230405, end: 20230418
  3. HERCEPTIN [Suspect]
     Active Substance: TRASTUZUMAB
     Indication: Drug therapy
     Dosage: 350 MG, ONCE, IV DRIP
     Route: 041
     Dates: start: 20230405, end: 20230405
  4. PACLITAXEL [Suspect]
     Active Substance: PACLITAXEL
     Indication: Drug therapy
     Dosage: 400 MG, ONCE, IV DRIP
     Route: 041
     Dates: start: 20230405, end: 20230405

REACTIONS (2)
  - Myelosuppression [Recovered/Resolved]
  - Product use in unapproved indication [Unknown]

NARRATIVE: CASE EVENT DATE: 20230405
